FAERS Safety Report 10593517 (Version 3)
Quarter: 2015Q1

REPORT INFORMATION
  Report Type: Spontaneous
  Country: FR (occurrence: FR)
  Receive Date: 20141119
  Receipt Date: 20150127
  Transmission Date: 20150720
  Serious: Yes (Other)
  Sender: FDA-Public Use
  Company Number: FR-B.I. PHARMACEUTICALS,INC./RIDGEFIELD-2014-BI-54822FF

PATIENT
  Age: 69 Year
  Sex: Male

DRUGS (1)
  1. ATROVENT [Suspect]
     Active Substance: IPRATROPIUM BROMIDE
     Indication: PRODUCT USED FOR UNKNOWN INDICATION
     Dosage: FORMULATION: UNIT DOSE VIAL; DOSE PER APPLICATION AND DAILY DOSE: 0.50MG/1ML ADULTES
     Route: 047
     Dates: start: 20141012, end: 20141012

REACTIONS (3)
  - Medication error [Recovered/Resolved]
  - Vision blurred [Recovered/Resolved]
  - Wrong drug administered [Recovered/Resolved]

NARRATIVE: CASE EVENT DATE: 20141012
